FAERS Safety Report 7332372-2 (Version None)
Quarter: 2011Q1

REPORT INFORMATION
  Report Type: 
  Country: None (occurrence: None)
  Receive Date: 20110304
  Receipt Date: 20101028
  Transmission Date: 20110831
  Serious: Yes (Hospitalization)
  Sender: FDA-Public Use
  Company Number: B0682232A

PATIENT
  Sex: Female
  Weight: 50 kg

DRUGS (5)
  1. XELODA [Suspect]
     Indication: BREAST CANCER
     Dosage: 3000MG PER DAY
     Route: 048
     Dates: start: 20090810, end: 20100120
  2. TYKERB [Suspect]
     Indication: BREAST CANCER
     Dosage: 1250MG PER DAY
     Route: 048
     Dates: start: 20090810, end: 20100120
  3. ZOMETA [Concomitant]
     Indication: METASTASES TO BONE
     Route: 042
     Dates: start: 20080502
  4. MUCOSTA [Concomitant]
     Route: 048
     Dates: start: 20091106, end: 20091101
  5. LANSOPRAZOLE [Concomitant]
     Indication: GASTRODUODENAL ULCER
     Route: 048

REACTIONS (4)
  - LYMPHANGIOSIS CARCINOMATOSA [None]
  - METASTASES TO LIVER [None]
  - BREAST CANCER METASTATIC [None]
  - NEOPLASM MALIGNANT [None]
